FAERS Safety Report 8970775 (Version 3)
Quarter: 2013Q2

REPORT INFORMATION
  Report Type: Spontaneous
  Country: DE (occurrence: DE)
  Receive Date: 20121218
  Receipt Date: 20130502
  Transmission Date: 20140414
  Serious: Yes (Hospitalization)
  Sender: FDA-Public Use
  Company Number: DE-UCBSA-072240

PATIENT
  Age: 65 Year
  Sex: Male
  Weight: 89 kg

DRUGS (6)
  1. NEUPRO [Suspect]
     Indication: PARKINSON^S DISEASE
     Route: 062
     Dates: start: 2010
  2. STALEVO [Concomitant]
     Indication: PARKINSON^S DISEASE
     Dosage: DAILY DOSE: 600, 100
     Dates: start: 200812
  3. MADOPAR LT [Concomitant]
     Indication: PARKINSON^S DISEASE
     Dosage: DAILY DOSE: 1
     Dates: start: 200601
  4. JUTAXAN [Concomitant]
     Indication: HYPERTONIA
     Dosage: DAILY DOSE: 50 MG
     Dates: start: 2002
  5. JUTAXAN [Concomitant]
     Indication: HYPERTENSION
     Dosage: DAILY DOSE: 50 MG
     Dates: start: 2002
  6. AMANTADIN [Concomitant]
     Indication: PARKINSON^S DISEASE
     Dosage: DAILY DOSE: 200 MG
     Dates: start: 201208

REACTIONS (6)
  - Cerebrovascular accident [Unknown]
  - Hallucination [Recovered/Resolved]
  - Feeling abnormal [Unknown]
  - Nausea [Recovered/Resolved]
  - Dizziness [Recovered/Resolved]
  - Drug ineffective [Recovered/Resolved]
